FAERS Safety Report 20932907 (Version 1)
Quarter: 2022Q2

REPORT INFORMATION
  Report Type: Spontaneous
  Country: US (occurrence: US)
  Receive Date: 20220608
  Receipt Date: 20220608
  Transmission Date: 20220720
  Serious: Yes (Other)
  Sender: FDA-Public Use
  Company Number: US-REGENERON PHARMACEUTICALS, INC.-2022-057420

PATIENT
  Sex: Female

DRUGS (1)
  1. EYLEA [Suspect]
     Active Substance: AFLIBERCEPT
     Indication: Age-related macular degeneration
     Dosage: UNK, EVERY 5 TO 6 WEEKS, STARTED ABOUT 10 YEARS AGO

REACTIONS (5)
  - Cerebrovascular accident [Unknown]
  - Dizziness [Unknown]
  - Disturbance in attention [Unknown]
  - Conduction disorder [Unknown]
  - Vision blurred [Unknown]
